FAERS Safety Report 8012905-3 (Version None)
Quarter: 2011Q4

REPORT INFORMATION
  Report Type: 
  Country: None (occurrence: None)
  Receive Date: 20111229
  Receipt Date: 20111221
  Transmission Date: 20120403
  Serious: Yes (Hospitalization)
  Sender: FDA-Public Use
  Company Number: AU-JNJFOC-20110802738

PATIENT
  Sex: Male
  Weight: 59 kg

DRUGS (2)
  1. INVEGA SUSTENNA [Suspect]
     Indication: SCHIZOPHRENIA
     Route: 030
     Dates: start: 20110701, end: 20110708
  2. PALIPERIDONE [Concomitant]
     Indication: ILLUSION
     Dates: start: 20110722, end: 20110803

REACTIONS (1)
  - ILLUSION [None]
